FAERS Safety Report 8776752 (Version 1)
Quarter: 2012Q4

REPORT INFORMATION
  Report Type: 
  Country: BR (occurrence: BR)
  Receive Date: 20120910
  Receipt Date: 20120910
  Transmission Date: 20130627
  Serious: Yes (Other)
  Sender: FDA-Public Use
  Company Number: PHHY2012BR076585

PATIENT
  Sex: Female
  Weight: 72 kg

DRUGS (9)
  1. DIOVAN [Suspect]
     Indication: HYPERTENSION
     Dosage: UNK UKN, UNK
  2. DIOVAN HCT [Suspect]
     Indication: HYPERTENSION
     Dosage: 1 DF (Valsartan 160mg and hydrochlorothiazide 12.5mg) a day
     Route: 048
  3. DIOVAN HCT [Suspect]
     Dosage: 1 DF (Valsartan 320mg and hydrochlorothiazide 12.5mg) a day
     Route: 048
  4. FORASEQ [Suspect]
     Indication: ASTHMA
     Dosage: 1 DF (1 capsule of each treatment a day)
     Dates: start: 20120831
  5. FORASEQ [Suspect]
     Dosage: 1 DF (1 capsule of each treatment a day)
  6. STILNOX [Concomitant]
     Indication: INSOMNIA
     Dosage: 1 DF (1 tablet a day)
     Route: 048
  7. SYMBICORT [Concomitant]
     Indication: ASTHMA
     Dosage: 1 DF,(1 or 2 inhalations a day if necessary)
  8. SYMBICORT [Concomitant]
     Dosage: 1 DF,(1 or 2 inhalations a day if necessary)
  9. VACCINES [Concomitant]
     Indication: HYPERSENSITIVITY
     Dosage: UNK UKN, UNK

REACTIONS (5)
  - Asthma [Recovered/Resolved]
  - Blood pressure inadequately controlled [Recovered/Resolved]
  - Drug intolerance [Recovered/Resolved]
  - Tongue disorder [Recovered/Resolved]
  - Wrong technique in drug usage process [Recovered/Resolved]
